FAERS Safety Report 4665664-6 (Version None)
Quarter: 2005Q2

REPORT INFORMATION
  Report Type: 
  Country: None (occurrence: None)
  Receive Date: 20050518
  Receipt Date: 20050518
  Transmission Date: 20051028
  Serious: Yes (Disabling)
  Sender: FDA-Public Use
  Company Number: None

PATIENT
  Weight: 136.5327 kg

DRUGS (10)
  1. EFFEXOR XR [Suspect]
     Indication: ANXIETY
     Dosage: ONE CAP TWICE A DAY ORAL
     Route: 048
     Dates: start: 19970729, end: 20000517
  2. EFFEXOR XR [Suspect]
     Indication: DEPRESSION
     Dosage: ONE CAP TWICE A DAY ORAL
     Route: 048
     Dates: start: 19970729, end: 20000517
  3. XANAX [Concomitant]
  4. NEURONTIN [Concomitant]
  5. TAGAMET [Concomitant]
  6. MAXZIDE [Concomitant]
  7. ATENOLOL [Concomitant]
  8. BUSPIRONE HCL [Concomitant]
  9. DIOVAN [Concomitant]
  10. ZANAFLEX [Concomitant]

REACTIONS (13)
  - AMNESIA [None]
  - ASTHENIA [None]
  - CONDUCTION DISORDER [None]
  - DEPRESSED MOOD [None]
  - DISTURBANCE IN ATTENTION [None]
  - DRUG DEPENDENCE [None]
  - EMOTIONAL DISORDER [None]
  - HYPERTENSION [None]
  - MALAISE [None]
  - NAUSEA [None]
  - NERVOUS SYSTEM DISORDER [None]
  - VISUAL DISTURBANCE [None]
  - WEIGHT INCREASED [None]
